FAERS Safety Report 5380683-2 (Version None)
Quarter: 2007Q3

REPORT INFORMATION
  Report Type: 
  Country: None (occurrence: None)
  Receive Date: 20070706
  Receipt Date: 20070627
  Transmission Date: 20080115
  Serious: Yes (Other)
  Sender: FDA-Public Use
  Company Number: B0463818A

PATIENT
  Sex: Male

DRUGS (3)
  1. NIQUITIN CQ 2MG LOZENGE [Suspect]
     Dosage: 2MG SEE DOSAGE TEXT
     Route: 002
     Dates: start: 20030901
  2. AMLODIPINE [Concomitant]
     Dosage: 10MG PER DAY
  3. ATENOLOL [Concomitant]
     Dosage: 50MG PER DAY

REACTIONS (5)
  - DEPENDENCE [None]
  - FLATULENCE [None]
  - INTENTIONAL DRUG MISUSE [None]
  - MOOD ALTERED [None]
  - PALPITATIONS [None]
